FAERS Safety Report 6027068-3 (Version None)
Quarter: 2009Q1

REPORT INFORMATION
  Report Type: 
  Country: None (occurrence: None)
  Receive Date: 20090105
  Receipt Date: 20081205
  Transmission Date: 20090719
  Serious: No
  Sender: FDA-Public Use
  Company Number: US-BAYER-200840441NA

PATIENT
  Sex: Female

DRUGS (2)
  1. YAZ [Suspect]
     Indication: DRUG USE FOR UNKNOWN INDICATION
     Dosage: TOTAL DAILY DOSE: 1 DF
     Route: 048
  2. ANTIBIOTICS [Concomitant]
     Indication: DRUG USE FOR UNKNOWN INDICATION

REACTIONS (1)
  - MENSTRUATION DELAYED [None]
